FAERS Safety Report 5319963-5 (Version None)
Quarter: 2007Q2

REPORT INFORMATION
  Report Type: 
  Country: None (occurrence: None)
  Receive Date: 20070502
  Receipt Date: 20070416
  Transmission Date: 20071010
  Serious: Yes (Death, Hospitalization, Other)
  Sender: FDA-Public Use
  Company Number: 2007JP001176

PATIENT
  Age: 29 Year
  Sex: Female
  Weight: 58.1 kg

DRUGS (9)
  1. PROGRAF [Suspect]
     Indication: STEM CELL TRANSPLANT
     Dosage: 0.6 MG,CONTINUOUS, IV DRIP
     Route: 041
     Dates: start: 20030120, end: 20030301
  2. ORBENIN (CLOXACILLIN SODIUM) INJECTION [Suspect]
     Indication: BACTERIAL INFECTION
     Dosage: 0.5 G, BID, IV DRIP
     Route: 041
     Dates: start: 20030225, end: 20030317
  3. SANDIMMUNE [Suspect]
     Indication: STEM CELL TRANSPLANT
     Dosage: 100 MG, CONTINUOUS, IV DRIP
     Route: 041
     Dates: start: 20030325, end: 20030406
  4. DENOSINE (GANCICLOVIR) [Concomitant]
  5. DIFLUCAN [Concomitant]
  6. PREDNISOLONE [Suspect]
  7. DOPAMINE HCL [Concomitant]
  8. LASIX [Concomitant]
  9. OMEPRAL [Concomitant]

REACTIONS (13)
  - ACUTE GRAFT VERSUS HOST DISEASE [None]
  - BACTERIAL INFECTION [None]
  - CONDITION AGGRAVATED [None]
  - CONVULSION [None]
  - CYTOMEGALOVIRUS INFECTION [None]
  - DEHYDRATION [None]
  - DIARRHOEA [None]
  - DIPLOPIA [None]
  - GASTROINTESTINAL HAEMORRHAGE [None]
  - RENAL IMPAIRMENT [None]
  - REVERSIBLE POSTERIOR LEUKOENCEPHALOPATHY SYNDROME [None]
  - SHOCK HAEMORRHAGIC [None]
  - THROMBOTIC MICROANGIOPATHY [None]
